FAERS Safety Report 8541604-4 (Version None)
Quarter: 2012Q3

REPORT INFORMATION
  Report Type: 
  Country: None (occurrence: None)
  Receive Date: 20120726
  Receipt Date: 20120725
  Transmission Date: 20120928
  Serious: Yes (Other)
  Sender: FDA-Public Use
  Company Number: IT-ROCHE-1066444

PATIENT
  Sex: Female
  Weight: 65 kg

DRUGS (2)
  1. PEGASYS [Suspect]
     Indication: HEPATITIS C
     Dates: start: 20111118
  2. BLINDED ALISPORIVIR [Suspect]
     Indication: HEPATITIS C
     Route: 065
     Dates: end: 20111125

REACTIONS (2)
  - HYPOTENSION [None]
  - SYNCOPE [None]
